FAERS Safety Report 7204863-6 (Version None)
Quarter: 2010Q4

REPORT INFORMATION
  Report Type: 
  Country: None (occurrence: None)
  Receive Date: 20101230
  Receipt Date: 20101221
  Transmission Date: 20110411
  Serious: Yes (Hospitalization)
  Sender: FDA-Public Use
  Company Number: US-ABBOTT-10P-163-0693234-00

PATIENT
  Sex: Male
  Weight: 95.34 kg

DRUGS (15)
  1. HUMIRA [Suspect]
     Indication: RHEUMATOID ARTHRITIS
     Route: 058
     Dates: start: 20080601, end: 20100101
  2. HUMIRA [Suspect]
     Indication: CROHN'S DISEASE
     Route: 058
     Dates: start: 20100801, end: 20100801
  3. HUMIRA [Suspect]
     Route: 058
     Dates: start: 20100101, end: 20100801
  4. HUMIRA [Suspect]
     Route: 058
     Dates: start: 20100801
  5. HYDROCODONE [Concomitant]
     Indication: ARTHRALGIA
     Dosage: UNSURE OF STRENGTH
     Route: 048
  6. OXYCONTIN [Concomitant]
     Indication: BREAKTHROUGH PAIN
     Route: 048
  7. ASACOL [Concomitant]
     Indication: CROHN'S DISEASE
     Route: 048
  8. PREVACID [Concomitant]
     Indication: GASTROOESOPHAGEAL REFLUX DISEASE
     Route: 048
  9. PREVACID [Concomitant]
     Indication: HIATUS HERNIA
  10. BENTYL [Concomitant]
     Indication: CROHN'S DISEASE
     Route: 048
  11. URSO 250 [Concomitant]
     Indication: CROHN'S DISEASE
     Route: 048
  12. URSO 250 [Concomitant]
     Indication: PROPHYLAXIS
  13. URSO 250 [Concomitant]
     Indication: LIVER DISORDER
  14. LOPID [Concomitant]
     Indication: BLOOD TRIGLYCERIDES INCREASED
     Route: 048
  15. LOPID [Concomitant]
     Indication: BLOOD CHOLESTEROL INCREASED

REACTIONS (8)
  - ARTHRALGIA [None]
  - DRUG EFFECT DECREASED [None]
  - FREQUENT BOWEL MOVEMENTS [None]
  - HAEMATOCHEZIA [None]
  - INAPPROPRIATE SCHEDULE OF DRUG ADMINISTRATION [None]
  - LABORATORY TEST ABNORMAL [None]
  - MUSCULOSKELETAL PAIN [None]
  - RENAL CYST [None]
